FAERS Safety Report 16288170 (Version 3)
Quarter: 2019Q3

REPORT INFORMATION
  Report Type: Report from Study
  Country: DE (occurrence: DE)
  Receive Date: 20190508
  Receipt Date: 20190905
  Transmission Date: 20191004
  Serious: Yes (Other)
  Sender: FDA-Public Use
  Company Number: PHHY2014DE052142

PATIENT
  Age: 27 Year
  Sex: Female

DRUGS (1)
  1. ZARZIO [Suspect]
     Active Substance: FILGRASTIM
     Indication: STEM CELL DONOR
     Dosage: 2700 UG, IN TOTAL
     Route: 065
     Dates: start: 20130808, end: 20130812

REACTIONS (7)
  - Goitre [Recovered/Resolved with Sequelae]
  - Haematoma [Recovered/Resolved]
  - Autoimmune thyroiditis [Not Recovered/Not Resolved]
  - Bone pain [Recovered/Resolved]
  - Blood potassium decreased [Recovered/Resolved]
  - Intervertebral disc protrusion [Recovered/Resolved with Sequelae]
  - Dermal cyst [Recovered/Resolved]

NARRATIVE: CASE EVENT DATE: 20130808
